FAERS Safety Report 5364929-2 (Version None)
Quarter: 2007Q2

REPORT INFORMATION
  Report Type: 
  Country: None (occurrence: None)
  Receive Date: 20070621
  Receipt Date: 20070614
  Transmission Date: 20071010
  Serious: Yes (Hospitalization)
  Sender: FDA-Public Use
  Company Number: US-AMGEN-US229345

PATIENT
  Sex: Female

DRUGS (2)
  1. ENBREL [Suspect]
     Indication: PSORIASIS
     Route: 065
     Dates: start: 20040101, end: 20070501
  2. LISINOPRIL [Suspect]
     Route: 065

REACTIONS (2)
  - PANCREATITIS [None]
  - RENAL FAILURE [None]
